FAERS Safety Report 20768396 (Version 1)
Quarter: 2022Q2

REPORT INFORMATION
  Report Type: Report from Study
  Country: CA (occurrence: CA)
  Receive Date: 20220429
  Receipt Date: 20220429
  Transmission Date: 20220721
  Serious: Yes (Hospitalization)
  Sender: FDA-Public Use
  Company Number: CA-HLS-202200825

PATIENT
  Age: 55 Year
  Sex: Female

DRUGS (1)
  1. CLOZARIL [Suspect]
     Active Substance: CLOZAPINE
     Indication: Product used for unknown indication
     Route: 048
     Dates: start: 20110202

REACTIONS (7)
  - Atrial fibrillation [Unknown]
  - Electrocardiogram T wave abnormal [Unknown]
  - Therapy interrupted [Unknown]
  - Delirium [Unknown]
  - Defect conduction intraventricular [Unknown]
  - Left atrial enlargement [Unknown]
  - Sinus rhythm [Unknown]

NARRATIVE: CASE EVENT DATE: 20220413
